FAERS Safety Report 13947953 (Version 1)
Quarter: 2017Q3

REPORT INFORMATION
  Report Type: Spontaneous
  Country: US (occurrence: US)
  Receive Date: 20170908
  Receipt Date: 20170908
  Transmission Date: 20171128
  Serious: No
  Sender: FDA-Public Use
  Company Number: US-PFIZER INC-2017383058

PATIENT
  Sex: Female

DRUGS (1)
  1. METHOTREXATE SODIUM. [Suspect]
     Active Substance: METHOTREXATE SODIUM
     Dosage: UNK

REACTIONS (9)
  - Myalgia [Unknown]
  - Hypoaesthesia [Unknown]
  - Skin disorder [Unknown]
  - Auditory disorder [Unknown]
  - Visual impairment [Unknown]
  - Nervous system disorder [Unknown]
  - Heart rate irregular [Unknown]
  - Drug hypersensitivity [Unknown]
  - Musculoskeletal discomfort [Unknown]
